FAERS Safety Report 7995507 (Version 2)
Quarter: 2012Q4

REPORT INFORMATION
  Report Type: Spontaneous
  Country: TH (occurrence: None)
  Receive Date: 20110527
  Receipt Date: 20121115
  Transmission Date: 20130627
  Serious: Yes (Other)
  Sender: FDA-Public Use
  Company Number: CIP11001241

PATIENT
  Age: 58 Year
  Sex: Female

DRUGS (4)
  1. ACTONEL (RISEDRONATE SODIUM) TABLET, 35MG [Suspect]
     Indication: OSTEOPENIA
     Dosage: ORAL
     Route: 048
  2. ALENDRONATE SODIUM [Suspect]
     Indication: OSTEOPENIA
     Dosage: UNKNOWN, ORAL
     Route: 048
  3. CALCIUM CARBONATE (CALCIUM CARBONATE) [Concomitant]
  4. CALCITRIOL (CALCITRIOL) [Concomitant]

REACTIONS (3)
  - Pathological fracture [None]
  - Foot fracture [None]
  - Femur fracture [None]
